FAERS Safety Report 10836819 (Version 1)
Quarter: 2015Q1

REPORT INFORMATION
  Report Type: Report from Study
  Country: US (occurrence: US)
  Receive Date: 20150219
  Receipt Date: 20150219
  Transmission Date: 20150721
  Serious: No
  Sender: FDA-Public Use
  Company Number: US-ABBVIE-14P-163-1214336-00

PATIENT
  Age: 47 Year
  Sex: Male

DRUGS (7)
  1. ENTOCORT [Concomitant]
     Active Substance: BUDESONIDE
     Indication: PRODUCT USED FOR UNKNOWN INDICATION
  2. APRISO [Concomitant]
     Active Substance: MESALAMINE
     Indication: PRODUCT USED FOR UNKNOWN INDICATION
  3. ALBUTEROL. [Concomitant]
     Active Substance: ALBUTEROL
     Indication: ASTHMA
     Dosage: ONCE EVERY FEW MONTHS, WAS TAKING MAXIMUM EVERY 2-3 HOURS
     Route: 055
  4. ALBUTEROL. [Concomitant]
     Active Substance: ALBUTEROL
     Dosage: EVERY 2-3 HOURS
     Route: 055
  5. ALBUTEROL. [Concomitant]
     Active Substance: ALBUTEROL
     Dosage: ONCE A DAY OR LESS
     Route: 055
  6. HUMIRA [Suspect]
     Active Substance: ADALIMUMAB
     Indication: CROHN^S DISEASE
     Dates: start: 20140102, end: 20140313
  7. PREDNISONE. [Concomitant]
     Active Substance: PREDNISONE
     Indication: PRODUCT USED FOR UNKNOWN INDICATION
     Dates: end: 201403

REACTIONS (3)
  - Malaise [Recovering/Resolving]
  - Chest discomfort [Recovering/Resolving]
  - Dyspnoea [Recovering/Resolving]

NARRATIVE: CASE EVENT DATE: 20140213
